FAERS Safety Report 5971571-9 (Version None)
Quarter: 2008Q4

REPORT INFORMATION
  Report Type: 
  Country: None (occurrence: None)
  Receive Date: 20081126
  Receipt Date: 20081126
  Transmission Date: 20090506
  Serious: Yes (Hospitalization)
  Sender: FDA-Public Use
  Company Number: None

PATIENT
  Sex: Male
  Weight: 61 kg

DRUGS (6)
  1. TRIMETHOPRIM + SULFAMETHOXAZOLE [Suspect]
     Indication: ANTIFUNGAL PROPHYLAXIS
     Dosage: DS ONCE PO DAILY ORAL
     Route: 048
     Dates: start: 20081117, end: 20081122
  2. TRIMETHOPRIM + SULFAMETHOXAZOLE [Suspect]
     Indication: STAPHYLOCOCCAL INFECTION
     Dosage: DS ONCE PO DAILY ORAL
     Route: 048
     Dates: start: 20081117, end: 20081122
  3. VANCOMYCIN [Suspect]
     Indication: SKIN INFECTION
     Dosage: I GRAM EVERY 8 HRS IV
     Route: 042
     Dates: start: 20081117, end: 20081120
  4. VANCOMYCIN [Suspect]
     Indication: SOFT TISSUE INFECTION
     Dosage: I GRAM EVERY 8 HRS IV
     Route: 042
     Dates: start: 20081117, end: 20081120
  5. LINEZOLID [Concomitant]
  6. FLUCONAZOLE [Concomitant]

REACTIONS (1)
  - NEUTROPENIA [None]
